FAERS Safety Report 14557269 (Version 3)
Quarter: 2018Q3

REPORT INFORMATION
  Report Type: Spontaneous
  Country: IT (occurrence: IT)
  Receive Date: 20180221
  Receipt Date: 20180920
  Transmission Date: 20181010
  Serious: Yes (Life-Threatening, Hospitalization, Other)
  Sender: FDA-Public Use
  Company Number: IT-AUROBINDO-AUR-APL-2018-008673

PATIENT
  Age: 5 Year
  Sex: Female

DRUGS (9)
  1. ORAL REHYDRATION SALT [Concomitant]
     Indication: DEHYDRATION
     Dosage: UNK
     Route: 048
  2. IBUPROFEN. [Suspect]
     Active Substance: IBUPROFEN
     Indication: FEBRILE INFECTION
  3. IBUPROFEN. [Suspect]
     Active Substance: IBUPROFEN
     Indication: HYPERPYREXIA
  4. DIAZEPAM. [Concomitant]
     Active Substance: DIAZEPAM
     Indication: FEBRILE CONVULSION
     Dosage: UNK
     Route: 054
  5. PARACETAMOL [Suspect]
     Active Substance: ACETAMINOPHEN
     Indication: PYREXIA
     Dosage: 11 MG/KG, UNK (2 TOTAL DOSES OVER 5H) ; AS NECESSARY
     Route: 048
  6. IBUPROFEN. [Suspect]
     Active Substance: IBUPROFEN
     Indication: PYREXIA
     Dosage: 5 MG/KG, TID (THREE TOTAL DOSES) ; AS NECESSARY
     Route: 048
  7. CEFTRIAXON [Concomitant]
     Active Substance: CEFTRIAXONE
     Indication: FEBRILE CONVULSION
     Dosage: UNK
     Route: 065
  8. PARACETAMOL [Suspect]
     Active Substance: ACETAMINOPHEN
     Indication: FEBRILE INFECTION
  9. PARACETAMOL [Suspect]
     Active Substance: ACETAMINOPHEN
     Indication: CONVULSION PROPHYLAXIS

REACTIONS (5)
  - Acute hepatic failure [Recovered/Resolved]
  - Acute kidney injury [Recovered/Resolved]
  - Hepatitis cholestatic [Recovered/Resolved]
  - Hypertension [Recovered/Resolved]
  - Drug interaction [Recovered/Resolved]
